FAERS Safety Report 14615039 (Version 4)
Quarter: 2019Q4

REPORT INFORMATION
  Report Type: Report from Study
  Country: US (occurrence: US)
  Receive Date: 20180308
  Receipt Date: 20191219
  Transmission Date: 20200122
  Serious: Yes (Other)
  Sender: FDA-Public Use
  Company Number: PHEH2018US007814

PATIENT
  Sex: Male

DRUGS (1)
  1. COSENTYX [Suspect]
     Active Substance: SECUKINUMAB
     Indication: PRODUCT USED FOR UNKNOWN INDICATION
     Dosage: UNK
     Route: 065

REACTIONS (11)
  - Blindness [Unknown]
  - Pruritus [Unknown]
  - Osteoarthritis [Unknown]
  - Psoriatic arthropathy [Unknown]
  - Memory impairment [Unknown]
  - Retinal haemorrhage [Unknown]
  - Rash [Unknown]
  - Macular degeneration [Unknown]
  - Visual field defect [Unknown]
  - Headache [Not Recovered/Not Resolved]
  - Blister [Unknown]
